FAERS Safety Report 7703956-4 (Version None)
Quarter: 2011Q3

REPORT INFORMATION
  Report Type: 
  Country: None (occurrence: None)
  Receive Date: 20110823
  Receipt Date: 20110818
  Transmission Date: 20111222
  Serious: Yes (Hospitalization)
  Sender: FDA-Public Use
  Company Number: FR-ROCHE-797833

PATIENT
  Sex: Female

DRUGS (8)
  1. BONIVA [Suspect]
     Indication: OSTEOPOROSIS
     Route: 048
     Dates: start: 20101201, end: 20110727
  2. FUROSEMIDE [Concomitant]
  3. MOTILIUM [Concomitant]
  4. PANTOPRAZOLE [Concomitant]
  5. ACETAMINOPHEN [Concomitant]
  6. FORLAX [Concomitant]
  7. DENSICAL [Concomitant]
  8. MEMANTINE HYDROCHLORIDE [Concomitant]

REACTIONS (1)
  - ANAEMIA [None]
